FAERS Safety Report 24670876 (Version 1)
Quarter: 2024Q4

REPORT INFORMATION
  Report Type: Spontaneous
  Country: US (occurrence: US)
  Receive Date: 20241127
  Receipt Date: 20241127
  Transmission Date: 20250114
  Serious: No
  Sender: AMGEN
  Company Number: US-AMGEN-USASP2024234770

PATIENT
  Sex: Female

DRUGS (5)
  1. PROCYSBI [Suspect]
     Active Substance: CYSTEAMINE BITARTRATE
     Indication: Cystinosis
     Dosage: 125 MILLIGRAM, Q12H (5 X 25 MG CAPSULES)
  2. SODIUM ACETATE [Concomitant]
     Active Substance: SODIUM ACETATE
     Dosage: 2 MEQ/ML VIAL
  3. POTASSIUM [Concomitant]
     Active Substance: POTASSIUM
     Dosage: UNK 595(99)MG
  4. CALCIUM [Concomitant]
     Active Substance: CALCIUM
     Dosage: 500 (1250)
  5. VITAMIN D3 [Concomitant]
     Active Substance: CHOLECALCIFEROL
     Dosage: 25 MICROGRAM

REACTIONS (1)
  - Vomiting [Unknown]
